FAERS Safety Report 10185256 (Version 1)
Quarter: 2014Q2

REPORT INFORMATION
  Report Type: Spontaneous
  Country: US (occurrence: None)
  Receive Date: 20140520
  Receipt Date: 20140520
  Transmission Date: 20141212
  Serious: Yes (Hospitalization)
  Sender: FDA-Public Use
  Company Number: None

PATIENT
  Age: 14 Year
  Sex: 0
  Weight: 67.8 kg

DRUGS (6)
  1. METHOTREXATE INJECTION [Suspect]
     Indication: OSTEOSARCOMA
     Route: 042
     Dates: start: 20140314, end: 20140419
  2. BACTRIM DS [Concomitant]
  3. NEUPOGEN [Concomitant]
  4. DIPHENHYDRAMINE [Concomitant]
  5. ONDANSETRON [Concomitant]
  6. RANITIDINE [Concomitant]

REACTIONS (2)
  - Renal failure acute [None]
  - Toxicity to various agents [None]
